FAERS Safety Report 14237027 (Version 1)
Quarter: 2017Q4

REPORT INFORMATION
  Report Type: Spontaneous
  Country: US (occurrence: US)
  Receive Date: 20171129
  Receipt Date: 20171129
  Transmission Date: 20180321
  Serious: No
  Sender: FDA-Public Use
  Company Number: US-JNJFOC-20171009326

PATIENT
  Age: 45 Year
  Sex: Female
  Weight: 64.86 kg

DRUGS (2)
  1. MOTRIN [Suspect]
     Active Substance: IBUPROFEN
     Route: 048
  2. MOTRIN [Suspect]
     Active Substance: IBUPROFEN
     Indication: PRODUCT USED FOR UNKNOWN INDICATION
     Dosage: TOOK A SIP. NO SPECIFIC AMOUNT
     Route: 048
     Dates: start: 20171009, end: 20171009

REACTIONS (5)
  - Drug administered to patient of inappropriate age [Unknown]
  - Product physical issue [Unknown]
  - Throat irritation [Recovered/Resolved]
  - Cough [Recovered/Resolved]
  - Product use in unapproved indication [Unknown]

NARRATIVE: CASE EVENT DATE: 20171009
